APPROVED DRUG PRODUCT: CINNASIL
Active Ingredient: RESCINNAMINE
Strength: 0.5MG
Dosage Form/Route: CAPSULE;ORAL
Application: A084736 | Product #001
Applicant: PANRAY CORP SUB ORMONT DRUG AND CHEMICAL CO INC
Approved: Approved Prior to Jan 1, 1982 | RLD: No | RS: No | Type: DISCN